FAERS Safety Report 6755655-3 (Version None)
Quarter: 2010Q2

REPORT INFORMATION
  Report Type: 
  Country: None (occurrence: None)
  Receive Date: 20100604
  Receipt Date: 20100525
  Transmission Date: 20101027
  Serious: Yes (Other)
  Sender: FDA-Public Use
  Company Number: US-BAYER-201023759NA

PATIENT
  Age: 19 Year
  Sex: Female

DRUGS (1)
  1. MIRENA [Suspect]
     Indication: DRUG USE FOR UNKNOWN INDICATION
     Dosage: FREQUENCY: CONTINUOUS
     Route: 015
     Dates: start: 20080820

REACTIONS (5)
  - ABORTION SPONTANEOUS [None]
  - DEVICE DISLOCATION [None]
  - DEVICE EXPULSION [None]
  - PAIN [None]
  - PREGNANCY WITH CONTRACEPTIVE DEVICE [None]
